FAERS Safety Report 7421919-3 (Version None)
Quarter: 2011Q2

REPORT INFORMATION
  Report Type: 
  Country: None (occurrence: None)
  Receive Date: 20110418
  Receipt Date: 20110414
  Transmission Date: 20111010
  Serious: Yes (Hospitalization)
  Sender: FDA-Public Use
  Company Number: FR-ABBOTT-11P-056-0719138-00

PATIENT
  Sex: Female

DRUGS (7)
  1. LYRICA [Concomitant]
     Indication: PRODUCT USED FOR UNKNOWN INDICATION
  2. REPAGLINIDE [Concomitant]
     Indication: TYPE 2 DIABETES MELLITUS
  3. CRESTOR [Concomitant]
     Indication: HYPERCHOLESTEROLAEMIA
  4. INSULATARD [Concomitant]
     Indication: TYPE 2 DIABETES MELLITUS
  5. TARKA [Suspect]
     Indication: HYPERTENSION
     Route: 048
     Dates: start: 20110103, end: 20110118
  6. LEVOTHYROX [Concomitant]
     Indication: HYPOTHYROIDISM
  7. NEBIVOLOL HCL [Suspect]
     Indication: HYPERTENSION
     Route: 048

REACTIONS (3)
  - SINUS ARRHYTHMIA [None]
  - ATRIAL FIBRILLATION [None]
  - OEDEMA PERIPHERAL [None]
